FAERS Safety Report 5334912-1 (Version None)
Quarter: 2007Q2

REPORT INFORMATION
  Report Type: 
  Country: None (occurrence: None)
  Receive Date: 20070525
  Receipt Date: 20070516
  Transmission Date: 20071010
  Serious: Yes (Other)
  Sender: FDA-Public Use
  Company Number: US-ROCHE-477981

PATIENT
  Age: 27 Year
  Sex: Female

DRUGS (1)
  1. ACCUTANE [Suspect]
     Dosage: THE PATIENT TOOK TWO DOSES OF EXPIRED 40 MG CAPSULES.
     Route: 065
     Dates: start: 20061229, end: 20061230

REACTIONS (2)
  - NO ADVERSE EFFECT [None]
  - PREGNANCY [None]
